FAERS Safety Report 24178327 (Version 1)
Quarter: 2024Q3

REPORT INFORMATION
  Report Type: Report from Study
  Country: US (occurrence: US)
  Receive Date: 20240806
  Receipt Date: 20240806
  Transmission Date: 20241017
  Serious: No
  Sender: ROCHE
  Company Number: US-ROCHE-10000041872

PATIENT
  Age: 57 Year
  Sex: Female

DRUGS (2)
  1. OCREVUS [Suspect]
     Active Substance: OCRELIZUMAB
     Indication: Relapsing multiple sclerosis
     Route: 065
     Dates: end: 20201105
  2. OCREVUS [Suspect]
     Active Substance: OCRELIZUMAB
     Dosage: -DEC-2023: LAST DOSE OF OCREVUS
     Route: 065
     Dates: start: 202206

REACTIONS (9)
  - COVID-19 [Not Recovered/Not Resolved]
  - Urinary tract infection [Recovered/Resolved]
  - Bacterial infection [Recovered/Resolved]
  - Oropharyngeal pain [Recovered/Resolved]
  - Cough [Not Recovered/Not Resolved]
  - Pyrexia [Recovering/Resolving]
  - Somnolence [Recovered/Resolved]
  - Muscle disorder [Unknown]
  - Drug intolerance [Unknown]

NARRATIVE: CASE EVENT DATE: 20230101
